FAERS Safety Report 6545489-7 (Version None)
Quarter: 2010Q1

REPORT INFORMATION
  Report Type: 
  Country: None (occurrence: None)
  Receive Date: 20100121
  Receipt Date: 20091029
  Transmission Date: 20100710
  Serious: Yes (Death, Hospitalization)
  Sender: FDA-Public Use
  Company Number: DE-GENENTECH-269559

PATIENT
  Sex: Female

DRUGS (7)
  1. RITUXIMAB [Suspect]
     Indication: NON-HODGKIN'S LYMPHOMA
     Dosage: 660 A?G, UNK
     Route: 042
     Dates: start: 20080519
  2. MITOXANTRONE [Suspect]
     Indication: NON-HODGKIN'S LYMPHOMA
     Dosage: 10.5 A?G, UNK
     Route: 042
     Dates: start: 20080520
  3. FLUDARABINE [Suspect]
     Indication: NON-HODGKIN'S LYMPHOMA
     Dosage: 44 A?G, UNK
     Route: 042
     Dates: start: 20080520
  4. CYCLOPHOSPHAMIDE [Suspect]
     Indication: NON-HODGKIN'S LYMPHOMA
     Dosage: 352 A?G, UNK
     Route: 042
     Dates: start: 20080520
  5. ESOMEPRAZOLE [Concomitant]
     Indication: DRUG USE FOR UNKNOWN INDICATION
     Dosage: UNK
  6. SIMVASTATIN [Concomitant]
     Indication: DRUG USE FOR UNKNOWN INDICATION
     Dosage: UNK
  7. PHENPROCOUMON [Concomitant]
     Indication: DRUG USE FOR UNKNOWN INDICATION
     Dosage: UNK

REACTIONS (4)
  - CENTRAL NERVOUS SYSTEM LESION [None]
  - CEREBROVASCULAR ACCIDENT [None]
  - DEATH [None]
  - EPILEPSY [None]
